FAERS Safety Report 8304414-9 (Version None)
Quarter: 2012Q2

REPORT INFORMATION
  Report Type: 
  Country: None (occurrence: None)
  Receive Date: 20120423
  Receipt Date: 20120416
  Transmission Date: 20120825
  Serious: Yes (Hospitalization, Other)
  Sender: FDA-Public Use
  Company Number: US-BAYER-2011-070803

PATIENT
  Age: 28 Year
  Sex: Female
  Weight: 63.492 kg

DRUGS (2)
  1. TOPROL-XL [Concomitant]
  2. YASMIN [Suspect]
     Indication: CONTRACEPTION
     Dosage: UNK
     Dates: start: 20020901, end: 20040101

REACTIONS (8)
  - CEREBRAL THROMBOSIS [None]
  - FEAR OF DISEASE [None]
  - PSYCHOLOGICAL TRAUMA [None]
  - TRANSIENT ISCHAEMIC ATTACK [None]
  - ANAEMIA [None]
  - PAIN [None]
  - ANXIETY [None]
  - ANHEDONIA [None]
